FAERS Safety Report 4415842-6 (Version None)
Quarter: 2004Q3

REPORT INFORMATION
  Report Type: 
  Country: None (occurrence: None)
  Receive Date: 20040730
  Receipt Date: 20040722
  Transmission Date: 20050211
  Serious: Yes (Hospitalization, Other)
  Sender: FDA-Public Use
  Company Number: 2004-07-1149

PATIENT
  Age: 75 Year
  Sex: Male

DRUGS (1)
  1. EULEXIN [Suspect]
     Indication: PROSTATE CANCER
     Dosage: ORAL
     Route: 048

REACTIONS (3)
  - ENCEPHALOPATHY [None]
  - HEPATITIS CHOLESTATIC [None]
  - HEPATITIS E [None]
